FAERS Safety Report 8016608-0 (Version None)
Quarter: 2011Q4

REPORT INFORMATION
  Report Type: 
  Country: None (occurrence: None)
  Receive Date: 20111231
  Receipt Date: 20111223
  Transmission Date: 20120403
  Serious: Yes (Other)
  Sender: FDA-Public Use
  Company Number: US-AMGEN-USASP2011055081

PATIENT
  Age: 79 Year
  Sex: Female

DRUGS (2)
  1. WINRHO [Concomitant]
  2. NPLATE [Suspect]
     Indication: IDIOPATHIC THROMBOCYTOPENIC PURPURA
     Dosage: UNK
     Route: 058
     Dates: start: 20090209

REACTIONS (5)
  - RHINORRHOEA [None]
  - COUGH [None]
  - DIABETES MELLITUS [None]
  - MALAISE [None]
  - BLOOD GLUCOSE DECREASED [None]
